FAERS Safety Report 7209875-4 (Version None)
Quarter: 2011Q1

REPORT INFORMATION
  Report Type: 
  Country: None (occurrence: None)
  Receive Date: 20110104
  Receipt Date: 20101223
  Transmission Date: 20110831
  Serious: Yes (Hospitalization)
  Sender: FDA-Public Use
  Company Number: DE-BRISTOL-MYERS SQUIBB COMPANY-15098767

PATIENT
  Age: 67 Year
  Sex: Male
  Weight: 72 kg

DRUGS (2)
  1. CISPLATIN [Suspect]
     Indication: GASTROOESOPHAGEAL CANCER
     Dosage: FIRST INFUSION:29MAR10 RECENT INFUSION:19APR10.
     Route: 042
     Dates: start: 20100329
  2. XELODA [Suspect]
     Indication: GASTROOESOPHAGEAL CANCER
     Dosage: FIRST DOSE:29MAR10; ON DAY 1-15; MOST RECENT DOSE ON 02MAY2010.
     Route: 048
     Dates: start: 20100329

REACTIONS (1)
  - SUBCLAVIAN VEIN THROMBOSIS [None]
